FAERS Safety Report 6984957-0 (Version None)
Quarter: 2010Q3

REPORT INFORMATION
  Report Type: 
  Country: None (occurrence: None)
  Receive Date: 20100915
  Receipt Date: 20100901
  Transmission Date: 20110219
  Serious: Yes (Other)
  Sender: FDA-Public Use
  Company Number: US-ELI_LILLY_AND_COMPANY-US201007006796

PATIENT
  Sex: Female

DRUGS (2)
  1. EFFIENT [Suspect]
  2. PLAVIX [Concomitant]
     Dosage: 75 MG, UNK

REACTIONS (2)
  - CEREBROVASCULAR ACCIDENT [None]
  - STENT PLACEMENT [None]
